FAERS Safety Report 21872932 (Version 1)
Quarter: 2023Q1

REPORT INFORMATION
  Report Type: Spontaneous
  Country: US (occurrence: None)
  Receive Date: 20230115
  Receipt Date: 20230115
  Transmission Date: 20230418
  Serious: Yes (Disabling)
  Sender: FDA-Public Use
  Company Number: None

PATIENT
  Age: 33 Year
  Sex: Female
  Weight: 85.5 kg

DRUGS (1)
  1. BOTOX [Suspect]
     Active Substance: ONABOTULINUMTOXINA
     Indication: Migraine

REACTIONS (10)
  - Nausea [None]
  - Diarrhoea [None]
  - Tremor [None]
  - Injection site pain [None]
  - Skin tightness [None]
  - Injection site reaction [None]
  - Insomnia [None]
  - Weight decreased [None]
  - Palpitations [None]
  - Tinnitus [None]

NARRATIVE: CASE EVENT DATE: 20221219
